FAERS Safety Report 5636696-6 (Version None)
Quarter: 2008Q1

REPORT INFORMATION
  Report Type: 
  Country: None (occurrence: None)
  Receive Date: 20080225
  Receipt Date: 20080220
  Transmission Date: 20080703
  Serious: Yes (Life-Threatening)
  Sender: FDA-Public Use
  Company Number: JP-ASTRAZENECA-2008AP01222

PATIENT
  Age: 14625 Day
  Sex: Female

DRUGS (4)
  1. CRESTOR [Suspect]
     Indication: HYPERCHOLESTEROLAEMIA
     Route: 048
     Dates: start: 20080128, end: 20080128
  2. TRAVELMIN [Concomitant]
     Indication: VERTIGO
     Route: 048
     Dates: start: 20080128
  3. RIKKUNSHI-TO [Concomitant]
     Indication: VERTIGO
     Route: 048
     Dates: start: 20080128
  4. CARNACULIN [Concomitant]
     Indication: VERTIGO
     Route: 048
     Dates: start: 20080128

REACTIONS (1)
  - HAEMATURIA [None]
